FAERS Safety Report 18763586 (Version 1)
Quarter: 2021Q1

REPORT INFORMATION
  Report Type: Spontaneous
  Country: US (occurrence: US)
  Receive Date: 20210120
  Receipt Date: 20210120
  Transmission Date: 20210419
  Serious: No
  Sender: FDA-Public Use
  Company Number: US-PFIZER INC-2020420096

PATIENT
  Age: 61 Year
  Sex: Male

DRUGS (2)
  1. INLYTA [Suspect]
     Active Substance: AXITINIB
     Indication: RENAL CANCER METASTATIC
     Dosage: 5 MG
  2. BAVENCIO [Concomitant]
     Active Substance: AVELUMAB
     Dosage: UNK

REACTIONS (3)
  - Blood pressure abnormal [Unknown]
  - Product use in unapproved indication [Unknown]
  - Off label use [Unknown]
